FAERS Safety Report 6902817-8 (Version None)
Quarter: 2010Q3

REPORT INFORMATION
  Report Type: 
  Country: None (occurrence: None)
  Receive Date: 20100803
  Receipt Date: 20080731
  Transmission Date: 20110219
  Serious: No
  Sender: FDA-Public Use
  Company Number: US-PFIZER INC-2008064649

PATIENT
  Sex: Female
  Weight: 130 kg

DRUGS (3)
  1. LYRICA [Suspect]
     Indication: FIBROMYALGIA
     Route: 048
     Dates: start: 20080711
  2. METHOCARBAMOL [Concomitant]
     Route: 048
  3. ANTIHYPERTENSIVES [Concomitant]
     Route: 048

REACTIONS (4)
  - SENSATION OF HEAVINESS [None]
  - VERTIGO [None]
  - VITAMIN D DECREASED [None]
  - WEIGHT INCREASED [None]
